FAERS Safety Report 10226598 (Version 1)
Quarter: 2014Q2

REPORT INFORMATION
  Report Type: Spontaneous
  Country: US (occurrence: US)
  Receive Date: 20140609
  Receipt Date: 20140609
  Transmission Date: 20141212
  Serious: No
  Sender: FDA-Public Use
  Company Number: US-AMGEN INC.-USASP2014020725

PATIENT
  Age: 87 Year
  Sex: Female
  Weight: 81.63 kg

DRUGS (2)
  1. PROCRIT [Suspect]
     Indication: BLOOD DISORDER
     Dosage: 40000 UNIT, QWK
     Route: 065
  2. PROCRIT [Suspect]
     Indication: CARDIAC DISORDER

REACTIONS (1)
  - Nasopharyngitis [Not Recovered/Not Resolved]
